FAERS Safety Report 7152011-3 (Version None)
Quarter: 2010Q4

REPORT INFORMATION
  Report Type: 
  Country: None (occurrence: None)
  Receive Date: 20101123
  Receipt Date: 20101116
  Transmission Date: 20110411
  Serious: Yes (Other)
  Sender: FDA-Public Use
  Company Number: 2009SP023808

PATIENT
  Age: 66 Year
  Sex: Female

DRUGS (9)
  1. INTRON A (INTERFERON ALFA-2B) [Suspect]
     Indication: MALIGNANT MELANOMA
     Dosage: 40 MIU; IV, 30 MIU; IV, 20 MIU; IV, 15 MIU; TIW;
     Route: 042
     Dates: start: 20090810, end: 20090816
  2. INTRON A (INTERFERON ALFA-2B) [Suspect]
     Indication: MALIGNANT MELANOMA
     Dosage: 40 MIU; IV, 30 MIU; IV, 20 MIU; IV, 15 MIU; TIW;
     Route: 042
     Dates: start: 20090824, end: 20091012
  3. INTRON A (INTERFERON ALFA-2B) [Suspect]
     Indication: MALIGNANT MELANOMA
     Dosage: 40 MIU; IV, 30 MIU; IV, 20 MIU; IV, 15 MIU; TIW;
     Route: 042
     Dates: start: 20091109, end: 20100525
  4. INTRON A (INTERFERON ALFA-2B) [Suspect]
     Indication: MALIGNANT MELANOMA
     Dosage: 40 MIU; IV, 30 MIU; IV, 20 MIU; IV, 15 MIU; TIW;
     Route: 042
     Dates: start: 20090706
  5. INTRON A (INTERFERON ALFA-2B) [Suspect]
     Indication: MALIGNANT MELANOMA
     Dosage: 40 MIU; IV, 30 MIU; IV, 20 MIU; IV, 15 MIU; TIW;
     Route: 042
     Dates: start: 20090727
  6. EFFEXOR XR [Concomitant]
  7. AVANZA (MIRTAZAPINE) [Concomitant]
  8. PROCHLORPERAZINE MALEATE [Concomitant]
  9. PROCHLORPERAZINE MESILATE [Concomitant]

REACTIONS (31)
  - ACCIDENT [None]
  - ALOPECIA [None]
  - CHILLS [None]
  - DEPRESSED MOOD [None]
  - DIARRHOEA [None]
  - DIZZINESS [None]
  - DRY MOUTH [None]
  - DYSGEUSIA [None]
  - FALL [None]
  - FATIGUE [None]
  - GAIT DISTURBANCE [None]
  - GASTROINTESTINAL DISORDER [None]
  - HAEMOGLOBIN DECREASED [None]
  - HEADACHE [None]
  - HEPATITIS [None]
  - HYPERHIDROSIS [None]
  - LIP EXFOLIATION [None]
  - LYMPHOCYTE COUNT DECREASED [None]
  - MELANOMA RECURRENT [None]
  - MUSCULAR WEAKNESS [None]
  - NAUSEA [None]
  - ORTHOSTATIC HYPOTENSION [None]
  - PAIN [None]
  - PIGMENTATION DISORDER [None]
  - PLATELET COUNT INCREASED [None]
  - PYREXIA [None]
  - RASH [None]
  - RED BLOOD CELL COUNT DECREASED [None]
  - VERTIGO [None]
  - VOMITING [None]
  - WHITE BLOOD CELL COUNT DECREASED [None]
